FAERS Safety Report 7025352-8 (Version None)
Quarter: 2010Q4

REPORT INFORMATION
  Report Type: 
  Country: None (occurrence: None)
  Receive Date: 20101001
  Receipt Date: 20100917
  Transmission Date: 20110411
  Serious: Yes (Other)
  Sender: FDA-Public Use
  Company Number: PHHY2010US64220

PATIENT
  Sex: Female

DRUGS (5)
  1. DIOVAN [Suspect]
     Dosage: 80 MG, UNK
  2. AMOCLAVE [Concomitant]
  3. DICYCLOMINE [Concomitant]
  4. BUSPIRONE HCL [Concomitant]
  5. LEVOXYL [Concomitant]

REACTIONS (3)
  - BLOOD PRESSURE INCREASED [None]
  - CEREBRAL HAEMORRHAGE [None]
  - FALL [None]
